FAERS Safety Report 4742387-6 (Version None)
Quarter: 2005Q3

REPORT INFORMATION
  Report Type: 
  Country: None (occurrence: None)
  Receive Date: 20050808
  Receipt Date: 20050728
  Transmission Date: 20060218
  Serious: Yes (Congenital Anomaly, Other)
  Sender: FDA-Public Use
  Company Number: 2005108153

PATIENT
  Age: 1 Day
  Sex: Male
  Weight: 2.327 kg

DRUGS (4)
  1. NEURONTIN [Suspect]
     Indication: MIGRAINE
     Dosage: 400 UNKNOWN
     Route: 065
     Dates: start: 20030201, end: 20030201
  2. TOPAMAX [Suspect]
     Indication: MIGRAINE
     Dosage: 100 UNKNOWN
     Route: 065
  3. ALL OTHER THERAPEUTIC PRODUCTS (ALL OTHER THERAPEUTIC PRODUCTS) [Concomitant]
  4. PERCOCET [Concomitant]

REACTIONS (7)
  - CARDIAC ANEURYSM [None]
  - CONGENITAL ANOMALY [None]
  - DRUG EXPOSURE DURING PREGNANCY [None]
  - HEAD DEFORMITY [None]
  - JAUNDICE [None]
  - TRICUSPID VALVE DISEASE [None]
  - VENTRICULAR SEPTAL DEFECT [None]
